FAERS Safety Report 9995808 (Version 2)
Quarter: 2015Q4

REPORT INFORMATION
  Report Type: Spontaneous
  Country: US (occurrence: US)
  Receive Date: 20140311
  Receipt Date: 20151228
  Transmission Date: 20160305
  Serious: Yes (Hospitalization, Other)
  Sender: FDA-Public Use
  Company Number: US-BAYER-2014-034911

PATIENT
  Age: 34 Year
  Sex: Female
  Weight: 79 kg

DRUGS (9)
  1. COLAZAL [Concomitant]
     Active Substance: BALSALAZIDE DISODIUM
  2. NEXIUM [Concomitant]
     Active Substance: ESOMEPRAZOLE MAGNESIUM
  3. FEXOFENADINE [Concomitant]
     Active Substance: FEXOFENADINE\FEXOFENADINE HYDROCHLORIDE
     Dosage: 30 MG, UNK
  4. CHERATUSSIN AC [Concomitant]
     Active Substance: CODEINE PHOSPHATE\GUAIFENESIN
  5. METHYLPREDNISOLONE. [Concomitant]
     Active Substance: METHYLPREDNISOLONE
     Dosage: 4 MG, DOSEPAK
  6. PREDNISONE. [Concomitant]
     Active Substance: PREDNISONE
     Dosage: 10 MG, UNK
  7. BENZONATATE. [Concomitant]
     Active Substance: BENZONATATE
     Dosage: 100 UNK, UNK
  8. YAZ [Suspect]
     Active Substance: DROSPIRENONE\ETHINYL ESTRADIOL
  9. IBUPROFEN. [Concomitant]
     Active Substance: IBUPROFEN
     Dosage: 600 MG, UNK

REACTIONS (3)
  - Intracranial venous sinus thrombosis [None]
  - Vertebral artery occlusion [None]
  - Embolism arterial [None]

NARRATIVE: CASE EVENT DATE: 20081017
